FAERS Safety Report 5960660-0 (Version None)
Quarter: 2008Q4

REPORT INFORMATION
  Report Type: 
  Country: None (occurrence: None)
  Receive Date: 20081120
  Receipt Date: 20080722
  Transmission Date: 20090506
  Serious: No
  Sender: FDA-Public Use
  Company Number: US-ABBOTT-08P-163-0462822-00

PATIENT
  Sex: Female
  Weight: 70.37 kg

DRUGS (2)
  1. BIAXIN [Suspect]
     Indication: LUNG DISORDER
  2. BIAXIN [Suspect]
     Indication: ORGANISING PNEUMONIA

REACTIONS (2)
  - DEAFNESS [None]
  - HEARING IMPAIRED [None]
